FAERS Safety Report 16344916 (Version 1)
Quarter: 2019Q2

REPORT INFORMATION
  Report Type: Spontaneous
  Country: SE (occurrence: SE)
  Receive Date: 20190522
  Receipt Date: 20190522
  Transmission Date: 20190711
  Serious: Yes (Hospitalization, Disabling)
  Sender: FDA-Public Use
  Company Number: SE-B.I. PHARMACEUTICALS,INC./RIDGEFIELD-2019-12-001665

PATIENT
  Age: 63 Year
  Sex: Male

DRUGS (1)
  1. JARDIANCE [Suspect]
     Active Substance: EMPAGLIFLOZIN
     Indication: DIABETES MELLITUS
     Dosage: P^CAL FORM: FILMDRAGERAD TABLET?JARDIANCE 10 MG FILMDRAGERAD TABLETT
     Route: 048
     Dates: start: 20180322

REACTIONS (1)
  - Fournier^s gangrene [Recovered/Resolved with Sequelae]

NARRATIVE: CASE EVENT DATE: 20180621
